FAERS Safety Report 7790712-4 (Version None)
Quarter: 2011Q3

REPORT INFORMATION
  Report Type: 
  Country: None (occurrence: None)
  Receive Date: 20110930
  Receipt Date: 20110922
  Transmission Date: 20111222
  Serious: Yes (Other)
  Sender: FDA-Public Use
  Company Number: KR-PFIZER INC-2011225753

PATIENT
  Age: 51 Year
  Sex: Female

DRUGS (4)
  1. PREDNISOLONE [Suspect]
     Dosage: 60 MG, UNK
  2. PREDNISOLONE [Suspect]
     Dosage: 10 MG, UNK
  3. CYCLOPHOSPHAMIDE [Suspect]
     Indication: LUPUS NEPHRITIS
     Dosage: 500 MG, UNK
  4. METHYLPREDNISOLONE ACETATE [Suspect]
     Indication: LUPUS NEPHRITIS
     Dosage: 750 MG, UNK

REACTIONS (3)
  - THROMBOCYTOPENIA [None]
  - HYPERGLYCAEMIC HYPEROSMOLAR NONKETOTIC SYNDROME [None]
  - MYOCLONIC EPILEPSY [None]
